FAERS Safety Report 10152125 (Version 1)
Quarter: 2014Q2

REPORT INFORMATION
  Report Type: Spontaneous
  Country: GB (occurrence: GB)
  Receive Date: 20140505
  Receipt Date: 20140505
  Transmission Date: 20141212
  Serious: Yes (Other)
  Sender: FDA-Public Use
  Company Number: GB-MYLANLABS-2014S1009390

PATIENT
  Age: 62 Year
  Sex: Male
  Weight: 85 kg

DRUGS (11)
  1. FENTANYL [Suspect]
     Dosage: 200 MCG/HOUR PATCH
     Route: 062
     Dates: start: 2003
  2. ACTIQ [Suspect]
     Indication: PRODUCT USED FOR UNKNOWN INDICATION
     Dosage: 4 TO 5 LOZENGES PER DAY
     Route: 048
  3. ACTIQ [Suspect]
     Indication: PRODUCT USED FOR UNKNOWN INDICATION
     Route: 048
     Dates: start: 200509
  4. ACTIQ [Suspect]
     Indication: PRODUCT USED FOR UNKNOWN INDICATION
     Route: 048
     Dates: start: 2014
  5. ACTIQ [Suspect]
     Indication: PRODUCT USED FOR UNKNOWN INDICATION
     Dosage: ADVISED NOT TO FINISH THE LOZENGE (PROBLEMS TRYING TO GET 600MCG FROM LOCAL CHEMIST)
     Route: 048
  6. LACTULOSE [Concomitant]
     Dosage: 30 ML DAILY;
  7. LEVITRA [Concomitant]
  8. OMEPRAZOLE [Concomitant]
     Dosage: 20 MILLIGRAM DAILY;
  9. SEVREDOL [Concomitant]
  10. TESTOSTERONE [Concomitant]
  11. ZOLPIDEM [Concomitant]

REACTIONS (8)
  - Dependence [Not Recovered/Not Resolved]
  - Drug withdrawal syndrome [Not Recovered/Not Resolved]
  - Incorrect dose administered [Unknown]
  - Drug dispensing error [Unknown]
  - Agitation [Not Recovered/Not Resolved]
  - Hyperhidrosis [Not Recovered/Not Resolved]
  - Tremor [Not Recovered/Not Resolved]
  - Tension [Not Recovered/Not Resolved]
